FAERS Safety Report 4764886-3 (Version None)
Quarter: 2005Q3

REPORT INFORMATION
  Report Type: 
  Country: None (occurrence: None)
  Receive Date: 20050906
  Receipt Date: 20050822
  Transmission Date: 20060218
  Serious: Yes (Other)
  Sender: FDA-Public Use
  Company Number: USA050699950

PATIENT
  Age: 52 Year
  Sex: Female

DRUGS (11)
  1. FORTEO [Suspect]
     Indication: OSTEOPOROSIS
     Dates: start: 20050517
  2. MUCINEX (GUAIFENESIN) [Concomitant]
  3. BENADRYL [Concomitant]
  4. VITAMIN E (HERBAL OIL NOS) [Concomitant]
  5. THEOPHYLLINE [Concomitant]
  6. TEGRETOL [Concomitant]
  7. IBUPROFEN [Concomitant]
  8. CALCIUM WITH VITAMIN D [Concomitant]
  9. LORAZEPAM [Concomitant]
  10. ACETAMINOPHEN W/ CODEINE [Concomitant]
  11. ALUPENT [Concomitant]

REACTIONS (6)
  - CONSTIPATION [None]
  - DIARRHOEA [None]
  - LUNG NEOPLASM MALIGNANT [None]
  - NAUSEA [None]
  - PHARMACEUTICAL PRODUCT COMPLAINT [None]
  - VOMITING [None]
